FAERS Safety Report 15147617 (Version 2)
Quarter: 2018Q3

REPORT INFORMATION
  Report Type: Spontaneous
  Country: US (occurrence: US)
  Receive Date: 20180716
  Receipt Date: 20180717
  Transmission Date: 20181010
  Serious: No
  Sender: FDA-Public Use
  Company Number: US-PFIZER INC-2018283373

PATIENT
  Sex: Female

DRUGS (1)
  1. ZOLOFT [Suspect]
     Active Substance: SERTRALINE HYDROCHLORIDE
     Dosage: UNK

REACTIONS (1)
  - Drug ineffective [Unknown]
